FAERS Safety Report 21441591 (Version 2)
Quarter: 2022Q4

REPORT INFORMATION
  Report Type: Spontaneous
  Country: US (occurrence: US)
  Receive Date: 20221011
  Receipt Date: 20221219
  Transmission Date: 20230113
  Serious: No
  Sender: FDA-Public Use
  Company Number: US-SA-SAC20221006001301

PATIENT
  Age: 49 Year
  Sex: Female

DRUGS (2)
  1. CEREZYME [Suspect]
     Active Substance: IMIGLUCERASE
     Indication: Gaucher^s disease
     Dosage: 3400 IU, QOW
     Route: 042
     Dates: start: 20100406
  2. CEREZYME [Suspect]
     Active Substance: IMIGLUCERASE
     Dosage: 3400 IU, QOW
     Route: 041
     Dates: start: 20211123

REACTIONS (2)
  - Bone pain [Unknown]
  - Fatigue [Unknown]
